FAERS Safety Report 10094814 (Version 4)
Quarter: 2016Q3

REPORT INFORMATION
  Report Type: Spontaneous
  Country: US (occurrence: US)
  Receive Date: 20140422
  Receipt Date: 20160719
  Transmission Date: 20161108
  Serious: No
  Sender: FDA-Public Use
  Company Number: US-PFIZER INC-2014108158

PATIENT
  Age: 75 Year
  Sex: Female

DRUGS (10)
  1. OMEGA-3 KRILL OIL [Concomitant]
     Dosage: UNK
  2. ATORVASTATIN [Concomitant]
     Active Substance: ATORVASTATIN
     Dosage: UNK
  3. LEVOTHYROXINE. [Concomitant]
     Active Substance: LEVOTHYROXINE
     Dosage: UNK
  4. BABY ASPIRIN [Concomitant]
     Active Substance: ASPIRIN
     Dosage: UNK
  5. TUMS [Concomitant]
     Active Substance: CALCIUM CARBONATE
     Dosage: UNK
  6. SUTENT [Suspect]
     Active Substance: SUNITINIB MALATE
     Indication: RENAL CELL CARCINOMA
     Dosage: 50 MG, UNK
     Dates: start: 201403, end: 2014
  7. SUTENT [Suspect]
     Active Substance: SUNITINIB MALATE
     Dosage: 25 MG, CYCLIC (DAILY FOR 28 DAYS ON / 14 DAYS OFF)
     Dates: start: 2014
  8. CALCIUM CITRATE/COLECALCIFEROL [Concomitant]
     Dosage: UNK
  9. LISINOPRIL. [Concomitant]
     Active Substance: LISINOPRIL
     Dosage: UNK
  10. VITAMIN D [Concomitant]
     Active Substance: CHOLECALCIFEROL
     Dosage: UNK

REACTIONS (12)
  - Abdominal discomfort [Unknown]
  - Oral pain [Unknown]
  - Eye swelling [Unknown]
  - Malaise [Unknown]
  - Fatigue [Unknown]
  - Colitis [Unknown]
  - Diarrhoea [Unknown]
  - Gastrointestinal infection [Unknown]
  - Dyspepsia [Unknown]
  - Dry mouth [Unknown]
  - Confusional state [Unknown]
  - Pain in extremity [Unknown]

NARRATIVE: CASE EVENT DATE: 2014
